FAERS Safety Report 10088281 (Version 1)
Quarter: 2014Q2

REPORT INFORMATION
  Report Type: Spontaneous
  Country: GB (occurrence: GB)
  Receive Date: 20140421
  Receipt Date: 20140421
  Transmission Date: 20141212
  Serious: Yes (Other)
  Sender: FDA-Public Use
  Company Number: GB-ROCHE-1381890

PATIENT
  Sex: 0

DRUGS (8)
  1. CAPECITABINE [Suspect]
     Indication: BREAST CANCER METASTATIC
     Dosage: SECOND LINE, 2000/1500 MG, 2 CYCLES, DAY 1 TO DAY 14
     Route: 065
     Dates: end: 20050216
  2. CAPECITABINE [Suspect]
     Dosage: 1500/1000 MG
     Route: 065
     Dates: end: 20040915
  3. CAPECITABINE [Suspect]
     Route: 065
     Dates: end: 20041109
  4. CAPECITABINE [Suspect]
     Dosage: 2000/1500 MG, DAY 1 TO 14
     Route: 065
  5. VINORELBINE [Suspect]
     Indication: BREAST CANCER METASTATIC
     Route: 042
  6. VINORELBINE [Suspect]
     Route: 048
  7. VINORELBINE [Suspect]
     Dosage: THIRD LINE, DAYS 1 AND 8
     Route: 048
  8. CARBOPLATIN [Concomitant]
     Dosage: 4 TH LINE
     Route: 065

REACTIONS (2)
  - Gastrointestinal toxicity [Unknown]
  - Haematotoxicity [Unknown]
